FAERS Safety Report 8480105-9 (Version None)
Quarter: 2012Q2

REPORT INFORMATION
  Report Type: 
  Country: None (occurrence: None)
  Receive Date: 20120629
  Receipt Date: 20120619
  Transmission Date: 20120825
  Serious: Yes (Hospitalization)
  Sender: FDA-Public Use
  Company Number: DE-ELI_LILLY_AND_COMPANY-DE201206006359

PATIENT
  Age: 74 Year
  Sex: Female

DRUGS (1)
  1. OLANZAPINE [Suspect]
     Indication: SCHIZOPHRENIA
     Dosage: 300 MG, UNK
     Route: 030

REACTIONS (5)
  - HYPERTENSIVE CRISIS [None]
  - SOMNOLENCE [None]
  - TACHYCARDIA [None]
  - AGGRESSION [None]
  - AGITATION [None]
